FAERS Safety Report 8431482-6 (Version None)
Quarter: 2012Q2

REPORT INFORMATION
  Report Type: 
  Country: None (occurrence: None)
  Receive Date: 20120604
  Receipt Date: 20090623
  Transmission Date: 20120825
  Serious: No
  Sender: FDA-Public Use
  Company Number: 2009AP002533

PATIENT
  Age: 79 Year
  Sex: Female

DRUGS (6)
  1. TRIAMTERENE [Concomitant]
  2. LISINOPRIL [Concomitant]
  3. LOVASTATIN [Concomitant]
  4. HYDROCHLOROTHIAZIDE [Concomitant]
  5. ACETYLSALICYLIC ACID SRT [Concomitant]
  6. DILTIAZEM [Suspect]

REACTIONS (3)
  - SKIN HYPERPIGMENTATION [None]
  - RASH [None]
  - PHOTOSENSITIVITY REACTION [None]
